FAERS Safety Report 4749654-0 (Version None)
Quarter: 2005Q3

REPORT INFORMATION
  Report Type: 
  Country: None (occurrence: None)
  Receive Date: 20050819
  Receipt Date: 20050819
  Transmission Date: 20060218
  Serious: Yes (Hospitalization)
  Sender: FDA-Public Use
  Company Number: None

PATIENT
  Age: 19 Year
  Sex: Female
  Weight: 61.2356 kg

DRUGS (9)
  1. RITUXIMAB    100MG AND 500MG VIALS    GENENTECH [Suspect]
     Indication: NON-HODGKIN'S LYMPHOMA
     Dosage: 600MG   EVERY 3 WEEKS   IV BOLUS
     Route: 040
     Dates: start: 20050621, end: 20050719
  2. CYCLOPHOSPHAMIDE   1000MG VIALS    BRISTOL MYERS SQUIBB [Suspect]
     Indication: NON-HODGKIN'S LYMPHOMA
     Dosage: 1200MG   EVERY 3 WEEKS    IV BOLUS
     Route: 040
     Dates: start: 20050621, end: 20050719
  3. VINCRISTINE [Concomitant]
  4. PREDNISONE TAB [Concomitant]
  5. METOCLOPRAMIDE [Concomitant]
  6. ZOFRAN [Concomitant]
  7. ZANTAC [Concomitant]
  8. ALUMINUM HYDROXIDE AND MAGNESIUM TRISILICATE [Concomitant]
  9. FERROUS SULFATE TAB [Concomitant]

REACTIONS (4)
  - ALVEOLITIS ALLERGIC [None]
  - DYSPNOEA [None]
  - PLEURISY [None]
  - PRODUCTIVE COUGH [None]
